FAERS Safety Report 8558187-5 (Version None)
Quarter: 2012Q3

REPORT INFORMATION
  Report Type: 
  Country: None (occurrence: None)
  Receive Date: 20120801
  Receipt Date: 20120730
  Transmission Date: 20120928
  Serious: Yes (Death)
  Sender: FDA-Public Use
  Company Number: FR-PFIZER INC-2012155764

PATIENT
  Age: 17 Year
  Sex: Male
  Weight: 53 kg

DRUGS (1)
  1. SOMATROPIN RDNA [Suspect]
     Dosage: 2.5 MG, 1X/DAY
     Dates: start: 20060213, end: 20090625

REACTIONS (1)
  - MEDULLOBLASTOMA RECURRENT [None]
